FAERS Safety Report 7621367-7 (Version None)
Quarter: 2011Q3

REPORT INFORMATION
  Report Type: 
  Country: None (occurrence: None)
  Receive Date: 20110719
  Receipt Date: 20110713
  Transmission Date: 20111222
  Serious: Yes (Hospitalization, Other)
  Sender: FDA-Public Use
  Company Number: US-SANOFI-AVENTIS-A03200606642

PATIENT
  Age: 73 Year
  Sex: Female
  Weight: 55 kg

DRUGS (25)
  1. PLAVIX [Suspect]
     Dosage: UNIT DOSE: 75 MG
     Route: 048
     Dates: start: 20030701, end: 20051001
  2. IMODIUM [Concomitant]
  3. COUMADIN [Concomitant]
     Dates: start: 20091201
  4. PLAVIX [Suspect]
     Indication: ATRIAL FIBRILLATION
     Dosage: UNIT DOSE: 75 MG
     Route: 048
     Dates: start: 20030701, end: 20051001
  5. TOPROL-XL [Concomitant]
     Indication: HYPERTENSION
  6. CARDIZEM [Concomitant]
  7. FOLIC ACID [Concomitant]
  8. SIMVASTATIN [Concomitant]
  9. ATIVAN [Concomitant]
  10. ENABLEX [Concomitant]
  11. PROCARDIA [Concomitant]
  12. MEDROL [Concomitant]
  13. LODINE [Concomitant]
  14. LANOXIN [Concomitant]
     Route: 048
  15. DIOVAN [Concomitant]
     Route: 048
  16. VICODIN [Concomitant]
  17. ADVAIR DISKUS 100/50 [Concomitant]
     Dosage: 1 PUFF QID 250/50
  18. LORTAB [Concomitant]
     Indication: PAIN
  19. ARICEPT [Concomitant]
  20. ASPIRIN [Concomitant]
  21. ESTROGENS CONJUGATED [Concomitant]
  22. PLAVIX [Suspect]
     Dosage: UNIT DOSE: 75 MG
     Route: 048
     Dates: start: 20030701, end: 20051001
  23. CENTRUM SILVER [Concomitant]
  24. THIAMINE [Concomitant]
  25. ZANAFLEX [Concomitant]

REACTIONS (19)
  - DIZZINESS [None]
  - APHASIA [None]
  - CHEST PAIN [None]
  - CEREBROVASCULAR ACCIDENT [None]
  - ATRIAL FIBRILLATION [None]
  - ELECTROCARDIOGRAM Q WAVE ABNORMAL [None]
  - AMNESIA [None]
  - HEADACHE [None]
  - ABASIA [None]
  - DYSPNOEA [None]
  - EMBOLIC STROKE [None]
  - HYPOTENSION [None]
  - ASTHENIA [None]
  - SENSORY LOSS [None]
  - OFF LABEL USE [None]
  - PARAESTHESIA [None]
  - ELECTROCARDIOGRAM QT PROLONGED [None]
  - HYPOAESTHESIA [None]
  - TRANSIENT ISCHAEMIC ATTACK [None]
